FAERS Safety Report 21565427 (Version 1)
Quarter: 2022Q4

REPORT INFORMATION
  Report Type: Spontaneous
  Country: DE (occurrence: DE)
  Receive Date: 20221108
  Receipt Date: 20221108
  Transmission Date: 20230113
  Serious: Yes (Hospitalization)
  Sender: FDA-Public Use
  Company Number: DE-ADRED-08493-01

PATIENT
  Age: 83 Year
  Sex: Female

DRUGS (12)
  1. ALLOPURINOL [Suspect]
     Active Substance: ALLOPURINOL
     Indication: Product used for unknown indication
     Dosage: 100 MG, 1-0-0-0, TABLETTEN (100 MG, 1-0-0-0, TABLETS)
     Route: 048
  2. TORSEMIDE [Suspect]
     Active Substance: TORSEMIDE
     Indication: Product used for unknown indication
     Dosage: 10 MG, 2-0-0-0, TABLETTEN (10 MG, 2-0-0-0, TABLETS)
     Route: 048
  3. LISINOPRIL [Suspect]
     Active Substance: LISINOPRIL
     Indication: Product used for unknown indication
     Dosage: 10 MG, 1-0-0-0, TABLETTEN (10 MG, 1-0-0-0, TABLETS)
     Route: 048
  4. METOPROLOL [Concomitant]
     Active Substance: METOPROLOL
     Indication: Product used for unknown indication
     Dosage: 95 MG, 1-0-0-0, RETARD-TABLETTEN (95 MG, 1-0-0-0, RETARD TABLETS)
     Route: 048
  5. NALOXONE HYDROCHLORIDE\TILIDINE HYDROCHLORIDE [Concomitant]
     Active Substance: NALOXONE HYDROCHLORIDE\TILIDINE HYDROCHLORIDE
     Indication: Product used for unknown indication
     Dosage: 8|100 MG, 1-1-1-0, RETARD-TABLETTEN (8|100 MG, 1-1-1-0, RETARD TABLETS)
     Route: 048
  6. EZETIMIBE [Concomitant]
     Active Substance: EZETIMIBE
     Indication: Product used for unknown indication
     Dosage: 10|20 MG, 0-0-1-0, TABLETTEN (10|20 MG, 0-0-1-0, TABLETS)
     Route: 048
  7. SODIUM BICARBONATE [Concomitant]
     Active Substance: SODIUM BICARBONATE
     Indication: Product used for unknown indication
     Dosage: 840 MG, 1-1-1-0, KAPSELN (840 MG, 1-1-1-0, CAPSULES)
     Route: 048
  8. PHENPROCOUMON [Concomitant]
     Active Substance: PHENPROCOUMON
     Indication: Product used for unknown indication
     Dosage: 3 MG, NACH INR, TABLETTEN (3 MG, ACCORDING TO INR, TABLETS)
     Route: 048
  9. CHOLECALCIFEROL [Concomitant]
     Active Substance: CHOLECALCIFEROL
     Indication: Product used for unknown indication
     Dosage: 20000 IE, NACH SCHEMA, KAPSELN (20000 IU, BY SCHEME, CAPSULES)
     Route: 048
  10. PANTOPRAZOLE SODIUM [Concomitant]
     Active Substance: PANTOPRAZOLE SODIUM
     Indication: Product used for unknown indication
     Dosage: 40 MG, 0-0-1-0, TABLETTEN (40 MG, 0-0-1-0, TABLETS)
  11. AMLODIPINE BESYLATE [Concomitant]
     Active Substance: AMLODIPINE BESYLATE
     Indication: Product used for unknown indication
     Dosage: 5 MG, 0-0-1-0, TABLETTEN (5 MG, 0-0-1-0, TABLETS)
     Route: 048
  12. INSULIN HUMAN [Concomitant]
     Active Substance: INSULIN HUMAN
     Indication: Product used for unknown indication
     Dosage: 1|1 IE, 24-0-18-0, FERTIGSPRITZEN (1|1 IU, 24-0-18-0, PRE-FILLED SYRINGES)
     Route: 058

REACTIONS (6)
  - Acute kidney injury [Unknown]
  - General physical health deterioration [Unknown]
  - Abdominal pain [Unknown]
  - Fatigue [Unknown]
  - Dehydration [Unknown]
  - Constipation [Unknown]
